FAERS Safety Report 21780036 (Version 1)
Quarter: 2022Q4

REPORT INFORMATION
  Report Type: Spontaneous
  Country: IR (occurrence: IR)
  Receive Date: 20221226
  Receipt Date: 20221226
  Transmission Date: 20230113
  Serious: Yes (Death, Hospitalization)
  Sender: FDA-Public Use
  Company Number: IR-STRIDES ARCOLAB LIMITED-2022SP017378

PATIENT
  Sex: Female

DRUGS (2)
  1. DIAZEPAM [Suspect]
     Active Substance: DIAZEPAM
     Indication: Seizure
     Dosage: UNK
     Route: 065
  2. LIDOCAINE [Concomitant]
     Active Substance: LIDOCAINE
     Indication: Suicide attempt
     Dosage: UNK, INGESTED A TOPICAL LIDOCAINE SPRAY SOLUTION TO COMMIT SUICIDE
     Route: 048

REACTIONS (5)
  - Hypotension [Fatal]
  - Metabolic acidosis [Fatal]
  - Cardio-respiratory arrest [Fatal]
  - Conduction disorder [Fatal]
  - Drug ineffective for unapproved indication [Fatal]
